FAERS Safety Report 5120963-9 (Version None)
Quarter: 2006Q4

REPORT INFORMATION
  Report Type: 
  Country: None (occurrence: None)
  Receive Date: 20061005
  Receipt Date: 20060921
  Transmission Date: 20070319
  Serious: Yes (Hospitalization)
  Sender: FDA-Public Use
  Company Number: 2006AP04468

PATIENT
  Age: 18067 Day
  Sex: Female
  Weight: 38 kg

DRUGS (5)
  1. ZOLADEX [Suspect]
     Indication: BREAST CANCER
     Route: 058
     Dates: start: 20040527, end: 20060329
  2. NOLVADEX [Suspect]
     Indication: BREAST CANCER
     Route: 048
     Dates: start: 20040525, end: 20060329
  3. FURTULON [Suspect]
     Indication: BREAST CANCER
     Route: 048
     Dates: start: 20040524, end: 20060621
  4. AROMASIN [Suspect]
     Indication: BREAST CANCER
     Route: 048
     Dates: start: 20040329, end: 20060621
  5. TAXOTERE [Concomitant]
     Indication: BREAST CANCER
     Route: 042
     Dates: start: 20040602, end: 20040616

REACTIONS (4)
  - ANOREXIA [None]
  - HEPATIC FIBROSIS [None]
  - HEPATIC NECROSIS [None]
  - LIVER DISORDER [None]
